FAERS Safety Report 8618641-4 (Version None)
Quarter: 2012Q3

REPORT INFORMATION
  Report Type: 
  Country: None (occurrence: None)
  Receive Date: 20120814
  Receipt Date: 20120814
  Transmission Date: 20120928
  Serious: Yes (Other)
  Sender: FDA-Public Use
  Company Number: None

PATIENT
  Age: 28 Year
  Sex: Female
  Weight: 61.2356 kg

DRUGS (1)
  1. OCELLA, 3 MG/0.02 MG, TEVA PHARMACEUTICALS USA [Suspect]
     Indication: CONTRACEPTION
     Dosage: 3.0 MG DROAPIRENONE/0.02MG, SID, PO
     Route: 048
     Dates: start: 20120401, end: 20120810

REACTIONS (4)
  - ATRIOVENTRICULAR BLOCK FIRST DEGREE [None]
  - DIZZINESS [None]
  - PRESYNCOPE [None]
  - FOOD POISONING [None]
